FAERS Safety Report 10694406 (Version 1)
Quarter: 2015Q1

REPORT INFORMATION
  Report Type: Spontaneous
  Country: US (occurrence: US)
  Receive Date: 20150107
  Receipt Date: 20150107
  Transmission Date: 20150721
  Serious: Yes (Other)
  Sender: FDA-Public Use
  Company Number: US-PFIZER INC-2015001127

PATIENT
  Sex: Female

DRUGS (1)
  1. ADVIL [Suspect]
     Active Substance: IBUPROFEN
     Dosage: 2 DF, EVERY 4 HRS

REACTIONS (3)
  - Gait disturbance [Not Recovered/Not Resolved]
  - Overdose [Unknown]
  - Loss of consciousness [Not Recovered/Not Resolved]
